FAERS Safety Report 5389721-4 (Version None)
Quarter: 2007Q3

REPORT INFORMATION
  Report Type: 
  Country: None (occurrence: None)
  Receive Date: 20070717
  Receipt Date: 20070711
  Transmission Date: 20080115
  Serious: Yes (Life-Threatening, Hospitalization)
  Sender: FDA-Public Use
  Company Number: GB-BOEHRINGER INGELHEIM PHARMACEUTICALS, INC.-2007-DE-04072GD

PATIENT
  Age: 75 Year
  Sex: Female

DRUGS (4)
  1. ASPIRIN [Suspect]
  2. DIPYRIDAMOLE [Suspect]
  3. MELOXICAM [Suspect]
     Indication: OSTEOARTHRITIS
  4. SIMVASTATIN [Concomitant]

REACTIONS (7)
  - HAEMATOMA [None]
  - HYPOTENSION [None]
  - MEDIASTINAL HAEMATOMA [None]
  - OBSTRUCTIVE AIRWAYS DISORDER [None]
  - OEDEMA [None]
  - POST PROCEDURAL HAEMORRHAGE [None]
  - RESPIRATORY TRACT HAEMORRHAGE [None]
